FAERS Safety Report 5787214-3 (Version None)
Quarter: 2008Q2

REPORT INFORMATION
  Report Type: 
  Country: None (occurrence: None)
  Receive Date: 20080625
  Receipt Date: 20070912
  Transmission Date: 20081010
  Serious: No
  Sender: FDA-Public Use
  Company Number: US-ASTRAZENECA-2007UW21550

PATIENT
  Age: 60 Year
  Sex: Female
  Weight: 86.2 kg

DRUGS (7)
  1. PULMICORT FLEXHALER [Suspect]
     Indication: ASTHMA
     Route: 055
  2. CLARITIN-D [Concomitant]
  3. ALLEGRA [Concomitant]
  4. HORMONES [Concomitant]
  5. BUSPIRONE HCL [Concomitant]
  6. CALCIUM [Concomitant]
  7. VITAMIN CAP [Concomitant]

REACTIONS (2)
  - COUGH [None]
  - THROAT IRRITATION [None]
